FAERS Safety Report 4548129-1 (Version None)
Quarter: 2004Q4

REPORT INFORMATION
  Report Type: 
  Country: None (occurrence: None)
  Receive Date: 20041227
  Receipt Date: 20041005
  Transmission Date: 20050328
  Serious: No
  Sender: FDA-Public Use
  Company Number: 04P-163-0274943-00

PATIENT
  Age: 74 Year
  Sex: Female
  Weight: 53.5244 kg

DRUGS (4)
  1. HUMIRA [Suspect]
     Indication: RHEUMATOID ARTHRITIS
     Dosage: 40 MG, 1 IN 2 WK, SUBCUTANEOUS
     Route: 058
     Dates: start: 20040816, end: 20040913
  2. BP [Concomitant]
  3. AZATHIOPRINE [Concomitant]
  4. LANSOPRAZOLE [Concomitant]

REACTIONS (2)
  - AMNESIA [None]
  - HEADACHE [None]
